FAERS Safety Report 7810211-0 (Version None)
Quarter: 2011Q4

REPORT INFORMATION
  Report Type: 
  Country: None (occurrence: None)
  Receive Date: 20111012
  Receipt Date: 20110927
  Transmission Date: 20120403
  Serious: Yes (Other)
  Sender: FDA-Public Use
  Company Number: HU-ROCHE-1000683

PATIENT
  Sex: Male

DRUGS (5)
  1. COPEGUS [Suspect]
     Indication: HEPATITIS C
     Dosage: 1200 (NO UNITS)
     Route: 048
     Dates: start: 20100910, end: 20110812
  2. HYDROCHLOROTHIAZIDE [Concomitant]
     Indication: HYPERTENSION
     Route: 048
     Dates: start: 19980101
  3. BISOPROLOL [Concomitant]
     Indication: HYPERTENSION
     Route: 048
     Dates: start: 19980101
  4. PEG-INTERFERON ALFA 2A [Suspect]
     Indication: HEPATITIS C
     Dosage: DOSE:180 (NO UNITS)
     Route: 058
     Dates: start: 20100910, end: 20110806
  5. ENALAPRIL MALEATE [Concomitant]
     Indication: HYPERTENSION
     Route: 048
     Dates: start: 19980101

REACTIONS (1)
  - THYROID CANCER [None]
